FAERS Safety Report 7544829-X (Version None)
Quarter: 2011Q2

REPORT INFORMATION
  Report Type: 
  Country: None (occurrence: None)
  Receive Date: 20110614
  Receipt Date: 20090430
  Transmission Date: 20111010
  Serious: Yes (Hospitalization, Other)
  Sender: FDA-Public Use
  Company Number: US-BAYER-200919158NA

PATIENT
  Age: 66 Year
  Sex: Female
  Weight: 70.295 kg

DRUGS (11)
  1. METOPROLOL SUCCINATE [Concomitant]
     Dosage: 25MG
     Route: 048
  2. HEPARIN [Concomitant]
     Dosage: 22,000UNITS
     Route: 042
     Dates: start: 20040209, end: 20040209
  3. PLATELETS [Concomitant]
     Dosage: 2UNITS
     Route: 042
     Dates: start: 20040209, end: 20040209
  4. TRASYLOL [Suspect]
     Indication: AORTIC ANEURYSM REPAIR
     Dosage: LOADING DOSE OF 250ML, FOLLOWED BY 25ML/HR INFUSION
     Route: 042
     Dates: start: 20040209, end: 20040210
  5. ACETYLSALICYLIC ACID SRT [Concomitant]
  6. CRYOPRECIPITATES [Concomitant]
     Dosage: 1UNIT
     Route: 042
  7. TRASYLOL [Suspect]
     Indication: AORTIC VALVE REPLACEMENT
     Dosage: 1 ML, ONCE, INITIAL TEST DOSE
     Route: 042
     Dates: start: 20040209, end: 20040210
  8. PROTAMINE SULFATE [Concomitant]
     Dosage: 400MG
     Route: 042
     Dates: start: 20040209, end: 20040209
  9. VECURONIUM BROMIDE [Concomitant]
     Dosage: 30 MG, ONCE
     Route: 042
     Dates: start: 20040209, end: 20040209
  10. PLASMA [Concomitant]
     Dosage: 4UNITS
     Route: 042
     Dates: start: 20040209, end: 20040209
  11. THROMBIN LOCAL SOLUTION [Concomitant]
     Dosage: 70000 U, ONCE
     Route: 042
     Dates: start: 20040209, end: 20040209

REACTIONS (11)
  - STRESS [None]
  - EMOTIONAL DISTRESS [None]
  - UNEVALUABLE EVENT [None]
  - FEAR [None]
  - CEREBROVASCULAR ACCIDENT [None]
  - PAIN [None]
  - ANXIETY [None]
  - RENAL IMPAIRMENT [None]
  - RENAL FAILURE [None]
  - MULTI-ORGAN FAILURE [None]
  - RENAL INJURY [None]
